FAERS Safety Report 4581133-6 (Version None)
Quarter: 2005Q1

REPORT INFORMATION
  Report Type: 
  Country: None (occurrence: None)
  Receive Date: 20050214
  Receipt Date: 20040811
  Transmission Date: 20050727
  Serious: Yes (Other)
  Sender: FDA-Public Use
  Company Number: US-GLAXOSMITHKLINE-A0521850A

PATIENT
  Age: 60 Year
  Sex: Female
  Weight: 74.1 kg

DRUGS (4)
  1. LAMICTAL [Suspect]
     Indication: BIPOLAR DISORDER
     Route: 048
     Dates: end: 20040811
  2. ZOLOFT [Concomitant]
     Dosage: 200MG PER DAY
     Route: 048
  3. PROVIGIL [Concomitant]
     Route: 048
     Dates: start: 20040428
  4. ATIVAN [Concomitant]
     Route: 048
     Dates: start: 20020521

REACTIONS (2)
  - MEDICATION ERROR [None]
  - RASH [None]
